FAERS Safety Report 4846249-5 (Version None)
Quarter: 2005Q4

REPORT INFORMATION
  Report Type: 
  Country: None (occurrence: None)
  Receive Date: 20051115
  Receipt Date: 20050824
  Transmission Date: 20060501
  Serious: Yes (Other)
  Sender: FDA-Public Use
  Company Number: 415711

PATIENT
  Age: 46 Year
  Sex: Male

DRUGS (4)
  1. PEGASYS [Suspect]
     Indication: HEPATITIS B VIRUS
     Dosage: 180 MCG 1 PER WEEK
     Dates: start: 20050719, end: 20050823
  2. EPIVIR (ABACAVIR SULFATE) [Concomitant]
  3. ZIAGEN [Concomitant]
  4. KALETRA [Concomitant]

REACTIONS (2)
  - MOUTH HAEMORRHAGE [None]
  - PLATELET COUNT DECREASED [None]
